FAERS Safety Report 4335810-2 (Version None)
Quarter: 2004Q2

REPORT INFORMATION
  Report Type: 
  Country: None (occurrence: None)
  Receive Date: 20040409
  Receipt Date: 20031211
  Transmission Date: 20050107
  Serious: Yes (Hospitalization, Other)
  Sender: FDA-Public Use
  Company Number: PHNU2003DE04405

PATIENT
  Age: 55 Year
  Sex: Female

DRUGS (3)
  1. GLEEVEC [Suspect]
     Indication: CHRONIC MYELOID LEUKAEMIA
     Dosage: 400MG/DAY
     Route: 048
     Dates: start: 20031101, end: 20031101
  2. GLEEVEC [Suspect]
     Dosage: 400MG/DAY
     Route: 048
  3. INTERFERON ALFA [Concomitant]
     Indication: CHRONIC MYELOID LEUKAEMIA
     Dosage: 2 MIO IU THREE TIMES WEEKLY

REACTIONS (2)
  - CARDIAC ABLATION [None]
  - SUPRAVENTRICULAR TACHYCARDIA [None]
